FAERS Safety Report 7722395-3 (Version None)
Quarter: 2011Q3

REPORT INFORMATION
  Report Type: 
  Country: None (occurrence: None)
  Receive Date: 20110831
  Receipt Date: 20110222
  Transmission Date: 20111222
  Serious: No
  Sender: FDA-Public Use
  Company Number: US-BAYER-2011-017153

PATIENT
  Sex: Female

DRUGS (1)
  1. MIRENA [Suspect]
     Indication: CONTRACEPTION
     Dosage: UNK
     Route: 015
     Dates: start: 20080901

REACTIONS (6)
  - FEELING ABNORMAL [None]
  - ANXIETY [None]
  - DEPRESSION [None]
  - PAIN [None]
  - DISTURBANCE IN ATTENTION [None]
  - FATIGUE [None]
